FAERS Safety Report 7880550-6 (Version None)
Quarter: 2011Q4

REPORT INFORMATION
  Report Type: 
  Country: None (occurrence: None)
  Receive Date: 20111101
  Receipt Date: 20111025
  Transmission Date: 20120403
  Serious: Yes (Death)
  Sender: FDA-Public Use
  Company Number: US-CELGENEUS-163-21880-11083398

PATIENT
  Sex: Female

DRUGS (3)
  1. REVLIMID [Suspect]
     Indication: DISEASE PROGRESSION
  2. REVLIMID [Suspect]
     Indication: BONE NEOPLASM MALIGNANT
     Dosage: 25 MILLIGRAM
     Route: 048
     Dates: start: 20110802, end: 20110902
  3. ASPIRIN [Concomitant]
     Dosage: 81 MILLIGRAM
     Route: 048
     Dates: start: 20110802, end: 20110902

REACTIONS (3)
  - DEATH [None]
  - FATIGUE [None]
  - HEADACHE [None]
